FAERS Safety Report 8025413-0 (Version None)
Quarter: 2012Q1

REPORT INFORMATION
  Report Type: 
  Country: None (occurrence: None)
  Receive Date: 20120105
  Receipt Date: 20120104
  Transmission Date: 20120608
  Serious: Yes (Hospitalization)
  Sender: FDA-Public Use
  Company Number: BR-BIOMARINP-001918

PATIENT
  Sex: Female
  Weight: 27.5 kg

DRUGS (5)
  1. VITAMIN C [Concomitant]
  2. AZITHROMYCIN [Concomitant]
     Route: 048
     Dates: start: 20110822, end: 20110824
  3. NAGLAZYME [Suspect]
     Indication: MUCOPOLYSACCHARIDOSIS VI
     Route: 041
     Dates: start: 20071114
  4. PLASMA TRANSFUSION [Concomitant]
     Indication: PRODUCT USED FOR UNKNOWN INDICATION
  5. ANTIPYRETICS [Concomitant]

REACTIONS (1)
  - INFLUENZA [None]
